FAERS Safety Report 16483372 (Version 1)
Quarter: 2019Q2

REPORT INFORMATION
  Report Type: Spontaneous
  Country: US (occurrence: US)
  Receive Date: 20190515
  Receipt Date: 20190515
  Transmission Date: 20190711
  Serious: No
  Sender: FDA-Public Use
  Company Number: None

PATIENT
  Age: 66 Year
  Sex: Female
  Weight: 66.68 kg

DRUGS (7)
  1. ASPIRIN. [Concomitant]
     Active Substance: ASPIRIN
  2. LEVETIRACTEAM [Concomitant]
  3. HYDROCHLOROTHIAZIDE. [Concomitant]
     Active Substance: HYDROCHLOROTHIAZIDE
  4. CALCIUM D [Concomitant]
     Active Substance: CALCIUM\VITAMIN D
  5. VC [Concomitant]
     Active Substance: ASCORBIC ACID
  6. PANTOPRAZOLE [Concomitant]
     Active Substance: PANTOPRAZOLE
  7. HYDROCHLOROTHIAZIDE. [Suspect]
     Active Substance: HYDROCHLOROTHIAZIDE
     Indication: HYPERTENSION

REACTIONS (9)
  - Dizziness [None]
  - Pain [None]
  - Product dispensing error [None]
  - Gait disturbance [None]
  - Muscular weakness [None]
  - Muscle spasms [None]
  - Rash [None]
  - Wrong product administered [None]
  - Adverse drug reaction [None]

NARRATIVE: CASE EVENT DATE: 2018
